FAERS Safety Report 8789457 (Version 1)
Quarter: 2012Q4

REPORT INFORMATION
  Report Type: Spontaneous
  Country: NL (occurrence: None)
  Receive Date: 20120906
  Receipt Date: 20120906
  Transmission Date: 20130627
  Serious: Yes (Other)
  Sender: FDA-Public Use
  Company Number: B0827403A

PATIENT
  Age: 37 Year
  Sex: Female

DRUGS (9)
  1. ZIDOVUDINE [Suspect]
     Dosage: therapy dates: 10 - unknown
  2. LAMIVUDINE [Suspect]
     Dosage: therapy dates: 10 - unknown
  3. LOPINAVIR + RITONAVIR [Suspect]
  4. FLUCONAZOLE [Concomitant]
  5. CO-TRIMOXAZOLE [Concomitant]
  6. ISONIAZID [Concomitant]
  7. AMPHOTERICIN [Concomitant]
  8. FLUCYTOSINE [Concomitant]
  9. RALTEGRAVIR [Concomitant]

REACTIONS (3)
  - Autoimmune thyroiditis [None]
  - Meningitis cryptococcal [None]
  - Immune reconstitution inflammatory syndrome [None]
